FAERS Safety Report 20247250 (Version 1)
Quarter: 2021Q4

REPORT INFORMATION
  Report Type: Spontaneous
  Country: US (occurrence: US)
  Receive Date: 20211229
  Receipt Date: 20211229
  Transmission Date: 20220304
  Serious: Yes (Death, Life-Threatening, Other)
  Sender: FDA-Public Use
  Company Number: US-SA-2021SA430471

PATIENT
  Age: 54 Year
  Sex: Male

DRUGS (10)
  1. RAMIPRIL [Suspect]
     Active Substance: RAMIPRIL
     Dosage: UNK, INGESTION
     Route: 048
  2. ACETAMINOPHEN [Suspect]
     Active Substance: ACETAMINOPHEN
     Dosage: UNK, INGESTION
  3. ACETAMINOPHEN [Suspect]
     Active Substance: ACETAMINOPHEN
     Dosage: UNK, INGESTION
  4. ACETAMINOPHEN [Suspect]
     Active Substance: ACETAMINOPHEN
     Dosage: UNK, INGESTION
  5. QUETIAPINE FUMARATE [Suspect]
     Active Substance: QUETIAPINE FUMARATE
     Dosage: UNK, INGESTION
     Route: 048
  6. CARVEDILOL [Suspect]
     Active Substance: CARVEDILOL
     Dosage: UNK, INGESTION
     Route: 048
  7. ALPRAZOLAM [Suspect]
     Active Substance: ALPRAZOLAM
     Dosage: UNK, INGESTION
     Route: 048
  8. ZOLPIDEM TARTRATE [Suspect]
     Active Substance: ZOLPIDEM TARTRATE
     Dosage: UNK, INGESTION
     Route: 048
  9. CARIPRAZINE [Suspect]
     Active Substance: CARIPRAZINE
     Dosage: UNK, INGESTION
     Route: 048
  10. TOPIRAMATE [Suspect]
     Active Substance: TOPIRAMATE
     Dosage: UNK, INGESTION
     Route: 048

REACTIONS (1)
  - Suspected suicide [Fatal]
